FAERS Safety Report 20764218 (Version 1)
Quarter: 2022Q2

REPORT INFORMATION
  Report Type: Spontaneous
  Country: US (occurrence: US)
  Receive Date: 20220428
  Receipt Date: 20220428
  Transmission Date: 20220721
  Serious: No
  Sender: FDA-Public Use
  Company Number: US-PFIZER INC-202101871822

PATIENT
  Age: 80 Year
  Sex: Male

DRUGS (1)
  1. INLYTA [Suspect]
     Active Substance: AXITINIB
     Dosage: 5 MG, EVERY 12 HOURS
     Route: 048
     Dates: start: 20210930, end: 2021

REACTIONS (4)
  - Skin disorder [Unknown]
  - Dyspepsia [Recovered/Resolved]
  - Rash [Unknown]
  - Cough [Not Recovered/Not Resolved]

NARRATIVE: CASE EVENT DATE: 20211001
